FAERS Safety Report 8127271 (Version 2)
Quarter: 2013Q2

REPORT INFORMATION
  Report Type: Spontaneous
  Country: None (occurrence: GB)
  Receive Date: 20110908
  Receipt Date: 20130606
  Transmission Date: 20140414
  Serious: Yes (Hospitalization)
  Sender: FDA-Public Use
  Company Number: GB-BAXTER-2011BH028368

PATIENT
  Age: 65 Year
  Sex: Male

DRUGS (2)
  1. ALBUMIN [Suspect]
     Indication: PLASMAPHERESIS
     Route: 042
     Dates: start: 20110806, end: 20110806
  2. ALBUMIN [Suspect]
     Indication: OFF LABEL USE

REACTIONS (4)
  - Hypersensitivity [Recovered/Resolved]
  - Cough [Unknown]
  - Stridor [Unknown]
  - Throat tightness [Unknown]
